FAERS Safety Report 9788976 (Version 2)
Quarter: 2013Q4

REPORT INFORMATION
  Report Type: Report from Study
  Country: JP (occurrence: JP)
  Receive Date: 20131230
  Receipt Date: 20131230
  Transmission Date: 20140711
  Serious: Yes (Death)
  Sender: FDA-Public Use
  Company Number: JP-TAKEDA-TCI2013A04847

PATIENT
  Age: 78 Year
  Sex: Female
  Weight: 46.1 kg

DRUGS (9)
  1. LANSOPRAZOLE [Suspect]
     Indication: PROPHYLAXIS AGAINST GASTROINTESTINAL ULCER
     Dosage: 15 MG, QD
     Route: 048
     Dates: start: 20111221, end: 20111231
  2. ACTOS [Concomitant]
     Dosage: 30 MG, 1 DAYS
     Route: 048
     Dates: end: 20120312
  3. BLOPRESS [Concomitant]
     Dosage: 8 MG, 1 DAYS
     Route: 048
     Dates: end: 20120210
  4. BASSAMIN [Concomitant]
     Indication: THROMBOSIS PROPHYLAXIS
     Dosage: 81 MG, 1 DAYS
     Route: 048
     Dates: end: 20120312
  5. WARFARIN POTASSIUM [Concomitant]
     Dosage: 1.75 MG, 1 DAYS
     Route: 048
     Dates: end: 20120312
  6. FUROSEMIDE [Concomitant]
     Dosage: 40 MG, 1 DAYS
     Route: 048
     Dates: end: 20120312
  7. MUCOSTA [Concomitant]
     Dosage: 300 MG, 1 DAYS
     Route: 048
     Dates: end: 20120312
  8. NICORANDIS [Concomitant]
     Indication: ANGINA PECTORIS
     Dosage: 15 MG, 1 DAYS
     Route: 048
     Dates: end: 20120312
  9. NITRODERM [Concomitant]
     Indication: ANGINA PECTORIS
     Dosage: 25 MG, 1 DAYS
     Route: 062
     Dates: end: 20120312

REACTIONS (1)
  - Death [Fatal]
